FAERS Safety Report 10383179 (Version 1)
Quarter: 2014Q3

REPORT INFORMATION
  Report Type: Report from Study
  Country: US (occurrence: US)
  Receive Date: 20140813
  Receipt Date: 20140813
  Transmission Date: 20150326
  Serious: Yes (Other)
  Sender: FDA-Public Use
  Company Number: PHHO2014US010739

PATIENT
  Sex: Male

DRUGS (1)
  1. SOM230 [Suspect]
     Active Substance: PASIREOTIDE
     Indication: PROSTATE CANCER
     Dosage: 80 MG, UNK
     Route: 030

REACTIONS (1)
  - Neutropenia [Unknown]
